FAERS Safety Report 16659809 (Version 3)
Quarter: 2025Q3

REPORT INFORMATION
  Report Type: Report from Study
  Country: CA (occurrence: CA)
  Receive Date: 20190802
  Receipt Date: 20250909
  Transmission Date: 20251021
  Serious: Yes (Hospitalization, Other)
  Sender: TAKEDA
  Company Number: CA-TAKEDA-2019TUS045999

PATIENT
  Sex: Female
  Weight: 75 kg

DRUGS (15)
  1. VEDOLIZUMAB [Suspect]
     Active Substance: VEDOLIZUMAB
     Indication: Crohn^s disease
  2. VEDOLIZUMAB [Suspect]
     Active Substance: VEDOLIZUMAB
  3. PANTOPRAZOLE SODIUM [Suspect]
     Active Substance: PANTOPRAZOLE SODIUM
     Indication: Product used for unknown indication
  4. ENTOCORT [Concomitant]
     Active Substance: BUDESONIDE
  5. PREDNISONE [Concomitant]
     Active Substance: PREDNISONE
     Dosage: 40 MILLIGRAM, QD
     Dates: start: 201907
  6. NORTRIPTYLINE [Concomitant]
     Active Substance: NORTRIPTYLINE
  7. HYDROMORPHONE [Concomitant]
     Active Substance: HYDROMORPHONE
  8. DILAUDID [Concomitant]
     Active Substance: HYDROMORPHONE HYDROCHLORIDE
  9. VENLAFAXINE [Concomitant]
     Active Substance: VENLAFAXINE HYDROCHLORIDE
  10. CYCLOBENZAPRINE [Concomitant]
     Active Substance: CYCLOBENZAPRINE
  11. ALENDRONATE [Concomitant]
     Active Substance: ALENDRONATE SODIUM
  12. LINACLOTIDE [Concomitant]
     Active Substance: LINACLOTIDE
  13. FERROUS GLUCONATE [Concomitant]
     Active Substance: FERROUS GLUCONATE
  14. GAVISCON [Concomitant]
     Active Substance: ALUMINUM HYDROXIDE\MAGNESIUM CARBONATE
  15. PERINDOPRIL [Concomitant]
     Active Substance: PERINDOPRIL

REACTIONS (4)
  - Pleural effusion [Unknown]
  - Crohn^s disease [Unknown]
  - Pericardial effusion [Unknown]
  - Viral pericarditis [Recovered/Resolved]

NARRATIVE: CASE EVENT DATE: 20190101
